FAERS Safety Report 4367875-6 (Version None)
Quarter: 2004Q2

REPORT INFORMATION
  Report Type: 
  Country: None (occurrence: None)
  Receive Date: 20040601
  Receipt Date: 20040601
  Transmission Date: 20050107
  Serious: Yes (Death)
  Sender: FDA-Public Use
  Company Number: None

PATIENT
  Age: 64 Year
  Sex: Female
  Weight: 73 kg

DRUGS (20)
  1. EMEND [Suspect]
     Indication: MALIGNANT MELANOMA STAGE III
     Dosage: SEE IMAGE
     Route: 048
     Dates: start: 20040326, end: 20040404
  2. . [Concomitant]
  3. DACARBAZINE [Concomitant]
  4. VINBLASTINE SULFATE [Concomitant]
  5. CISPLATIN [Concomitant]
  6. PROLEUKIN [Concomitant]
  7. INTRON A [Concomitant]
  8. BENADRYL [Concomitant]
  9. TYLENOL [Concomitant]
  10. REGLAN [Concomitant]
  11. BACTROBAN [Concomitant]
  12. EUCERIN [Concomitant]
  13. PROTONIX [Concomitant]
  14. ATIVAN [Concomitant]
  15. DEMEROL [Concomitant]
  16. ATARAX [Concomitant]
  17. LOMOTIL [Concomitant]
  18. TINCTURE OF OPIUM [Concomitant]
  19. VASELINE [Concomitant]
  20. NEULASTA [Concomitant]

REACTIONS (12)
  - ALPHA HAEMOLYTIC STREPTOCOCCAL INFECTION [None]
  - BLOOD CULTURE POSITIVE [None]
  - ENTEROBACTER BACTERAEMIA [None]
  - HAEMOGLOBIN DECREASED [None]
  - HYPOTENSION [None]
  - KLEBSIELLA BACTERAEMIA [None]
  - PLATELET COUNT DECREASED [None]
  - PYREXIA [None]
  - SEPSIS [None]
  - SYNCOPE [None]
  - TACHYCARDIA [None]
  - WHITE BLOOD CELL COUNT DECREASED [None]
